FAERS Safety Report 7097187-1 (Version None)
Quarter: 2010Q4

REPORT INFORMATION
  Report Type: 
  Country: None (occurrence: None)
  Receive Date: 20101111
  Receipt Date: 20100125
  Transmission Date: 20110411
  Serious: No
  Sender: FDA-Public Use
  Company Number: US-KINGPHARMUSA00001-K201000091

PATIENT
  Age: 60 Year
  Sex: Female
  Weight: 56.689 kg

DRUGS (4)
  1. EMBEDA [Suspect]
     Indication: BACK PAIN
     Dosage: 60 MG, BID
     Route: 048
     Dates: start: 20091001
  2. EMBEDA [Suspect]
     Dosage: 80 MG, BID
     Route: 048
  3. OXYCODONE HCL [Concomitant]
     Indication: BREAKTHROUGH PAIN
     Dosage: 5 MG, 1-2 EVERY 8 HOURS
  4. ANTIHYPERTENSIVE [Suspect]
     Dosage: UNK

REACTIONS (2)
  - ABDOMINAL PAIN [None]
  - DRUG INEFFECTIVE [None]
